FAERS Safety Report 8796774 (Version 1)
Quarter: 2012Q4

REPORT INFORMATION
  Report Type: 
  Country: US (occurrence: US)
  Receive Date: 20120917
  Receipt Date: 20120917
  Transmission Date: 20130627
  Serious: Yes (Other)
  Sender: FDA-Public Use
  Company Number: US-BAYER-2012-096402

PATIENT
  Age: 64 Year
  Sex: Female
  Weight: 66 kg

DRUGS (2)
  1. ALEVE SMOOTH GELS [Suspect]
     Dosage: 1 DF, QD
     Route: 048
     Dates: start: 20120830, end: 20120901
  2. ZOCOR [Concomitant]

REACTIONS (3)
  - Diplopia [Recovered/Resolved]
  - Dizziness [Recovered/Resolved]
  - Vomiting [Recovered/Resolved]
